FAERS Safety Report 7380501-7 (Version None)
Quarter: 2011Q1

REPORT INFORMATION
  Report Type: 
  Country: None (occurrence: None)
  Receive Date: 20110329
  Receipt Date: 20110321
  Transmission Date: 20110831
  Serious: Yes (Other)
  Sender: FDA-Public Use
  Company Number: US-ASTRAZENECA-2011SE16333

PATIENT
  Age: 51 Year
  Sex: Female

DRUGS (1)
  1. ARIMIDEX [Suspect]
     Route: 048

REACTIONS (7)
  - ARTHRALGIA [None]
  - RIB FRACTURE [None]
  - NEOPLASM MALIGNANT [None]
  - PNEUMONIA [None]
  - BRONCHITIS CHRONIC [None]
  - COUGH [None]
  - HYPERTENSION [None]
